FAERS Safety Report 23065486 (Version 2)
Quarter: 2023Q4

REPORT INFORMATION
  Report Type: Spontaneous
  Country: IT (occurrence: IT)
  Receive Date: 20231013
  Receipt Date: 20231017
  Transmission Date: 20240110
  Serious: Yes (Other)
  Sender: FDA-Public Use
  Company Number: IT-ELI_LILLY_AND_COMPANY-IT202309014937

PATIENT
  Age: 71 Year
  Sex: Male

DRUGS (2)
  1. PEMBROLIZUMAB [Suspect]
     Active Substance: PEMBROLIZUMAB
     Indication: Lung neoplasm malignant
     Dosage: UNK, UNKNOWN
     Route: 065
  2. AXITINIB [Suspect]
     Active Substance: AXITINIB
     Indication: Lung neoplasm malignant
     Dosage: UNK, UNKNOWN
     Route: 065

REACTIONS (4)
  - Thrombotic microangiopathy [Unknown]
  - Renal tubular necrosis [Unknown]
  - Fabry^s disease [Unknown]
  - Product use in unapproved indication [Unknown]
